FAERS Safety Report 5067615-1 (Version None)
Quarter: 2006Q3

REPORT INFORMATION
  Report Type: 
  Country: None (occurrence: None)
  Receive Date: 20060731
  Receipt Date: 20060712
  Transmission Date: 20061208
  Serious: Yes (Hospitalization)
  Sender: FDA-Public Use
  Company Number: US200605003819

PATIENT
  Age: 77 Year
  Sex: Female

DRUGS (2)
  1. FORTEO [Suspect]
     Indication: OSTEOPOROSIS
     Dates: start: 20041201, end: 20060626
  2. ASPIRIN TAB [Concomitant]

REACTIONS (9)
  - EYE SWELLING [None]
  - FALL [None]
  - HAEMATOMA [None]
  - INJECTION SITE BRUISING [None]
  - INJECTION SITE HAEMORRHAGE [None]
  - OCULAR HYPERAEMIA [None]
  - PATELLA FRACTURE [None]
  - PHARMACEUTICAL PRODUCT COMPLAINT [None]
  - SKIN LACERATION [None]
